FAERS Safety Report 7688233-2 (Version None)
Quarter: 2011Q3

REPORT INFORMATION
  Report Type: 
  Country: None (occurrence: None)
  Receive Date: 20110817
  Receipt Date: 20110628
  Transmission Date: 20111222
  Serious: No
  Sender: FDA-Public Use
  Company Number: US-GLAXOSMITHKLINE-A0934842A

PATIENT
  Age: 70 Year
  Sex: Male

DRUGS (10)
  1. ALLOPURINOL [Concomitant]
  2. GLUCOSAMINE + CHONDROITIN [Concomitant]
  3. CALCIUM CARBONATE [Concomitant]
  4. METFORMIN HCL [Concomitant]
  5. SIMAVASTATIN [Concomitant]
  6. TRIAMTERENE AND HYDROCHLOROTHIAZIDE [Concomitant]
  7. FISH OIL [Concomitant]
  8. MULTI-VITAMIN [Concomitant]
  9. VOTRIENT [Suspect]
     Indication: PRODUCT USED FOR UNKNOWN INDICATION
     Dosage: 400MG PER DAY
     Route: 048
  10. VITAMIN D [Concomitant]

REACTIONS (4)
  - HYPERTENSION [None]
  - NAUSEA [None]
  - HYPOTENSION [None]
  - VOMITING [None]
